FAERS Safety Report 24074993 (Version 2)
Quarter: 2024Q3

REPORT INFORMATION
  Report Type: Spontaneous
  Country: US (occurrence: US)
  Receive Date: 20240710
  Receipt Date: 20240919
  Transmission Date: 20241016
  Serious: No
  Sender: PFIZER
  Company Number: US-PFIZER INC-202400209994

PATIENT
  Age: 65 Year
  Sex: Female

DRUGS (1)
  1. CIBINQO [Suspect]
     Active Substance: ABROCITINIB
     Indication: Dermatitis atopic
     Dosage: 100 MG, 1X/DAY
     Route: 048

REACTIONS (8)
  - Impaired quality of life [Unknown]
  - Pruritus [Recovering/Resolving]
  - Pain [Unknown]
  - Insomnia [Unknown]
  - Gait disturbance [Unknown]
  - Weight increased [Unknown]
  - Skin disorder [Unknown]
  - Headache [Unknown]
